FAERS Safety Report 23385333 (Version 4)
Quarter: 2024Q1

REPORT INFORMATION
  Report Type: Report from Study
  Country: US (occurrence: US)
  Receive Date: 20240110
  Receipt Date: 20240320
  Transmission Date: 20240410
  Serious: Yes (Hospitalization)
  Sender: FDA-Public Use
  Company Number: US-ACADIA PHARMACEUTICALS INC.-ACA-2023-PIM-005856

PATIENT
  Sex: Male

DRUGS (2)
  1. NUPLAZID [Suspect]
     Active Substance: PIMAVANSERIN TARTRATE
     Indication: Parkinson^s disease psychosis
     Dosage: 34 MILLIGRAM, QD
     Route: 048
     Dates: start: 20231208, end: 20231213
  2. NUPLAZID [Suspect]
     Active Substance: PIMAVANSERIN TARTRATE
     Indication: Parkinsonism
     Dosage: 34 MILLIGRAM, QD
     Route: 048
     Dates: start: 20240124

REACTIONS (9)
  - Gait inability [Not Recovered/Not Resolved]
  - Ill-defined disorder [Unknown]
  - Mobility decreased [Unknown]
  - Speech disorder [Unknown]
  - Dialysis [Unknown]
  - Gait disturbance [Unknown]
  - Constipation [Unknown]
  - Confusional state [Unknown]
  - Gait disturbance [Unknown]
